FAERS Safety Report 13561121 (Version 1)
Quarter: 2017Q2

REPORT INFORMATION
  Report Type: Spontaneous
  Country: US (occurrence: US)
  Receive Date: 20170518
  Receipt Date: 20170518
  Transmission Date: 20170830
  Serious: No
  Sender: FDA-Public Use
  Company Number: US-ROCHE-713845

PATIENT
  Sex: Male

DRUGS (1)
  1. NAPROSYN [Suspect]
     Active Substance: NAPROXEN
     Indication: PAIN
     Dosage: STRENGTH: 125/5ML
     Route: 048

REACTIONS (2)
  - Rash pruritic [Unknown]
  - Dysgeusia [Unknown]
